FAERS Safety Report 5709051-8 (Version None)
Quarter: 2008Q2

REPORT INFORMATION
  Report Type: 
  Country: None (occurrence: None)
  Receive Date: 20080415
  Receipt Date: 20080415
  Transmission Date: 20081010
  Serious: No
  Sender: FDA-Public Use
  Company Number: None

PATIENT
  Age: 83 Year
  Sex: Male
  Weight: 91.6266 kg

DRUGS (1)
  1. DOXYCYCLINE HCL [Suspect]
     Indication: LOCALISED INFECTION
     Dosage: 1 TAB TWICE A DAY PO
     Route: 048
     Dates: start: 20080407, end: 20080411

REACTIONS (1)
  - VISUAL DISTURBANCE [None]
